FAERS Safety Report 6282706-5 (Version None)
Quarter: 2009Q3

REPORT INFORMATION
  Report Type: 
  Country: None (occurrence: None)
  Receive Date: 20090722
  Receipt Date: 20090722
  Transmission Date: 20100115
  Serious: Yes (Hospitalization)
  Sender: FDA-Public Use
  Company Number: None

PATIENT
  Age: 58 Year
  Sex: Male

DRUGS (2)
  1. SULFAMETHOXAZOLE AND TRIMETHOPRIM [Suspect]
     Indication: STAPHYLOCOCCAL INFECTION
     Dosage: 1 TAB OTHER PO
     Route: 048
     Dates: start: 20090527, end: 20090608
  2. LISINOPRIL [Suspect]
     Indication: HYPERTENSION
     Dosage: 60 MG EVERY DAY PO
     Route: 048
     Dates: start: 20070312, end: 20090608

REACTIONS (1)
  - RENAL FAILURE ACUTE [None]
